FAERS Safety Report 9697309 (Version 2)
Quarter: 2013Q4

REPORT INFORMATION
  Report Type: Spontaneous
  Country: BE (occurrence: BE)
  Receive Date: 20131120
  Receipt Date: 20131122
  Transmission Date: 20140711
  Serious: Yes (Death, Other)
  Sender: FDA-Public Use
  Company Number: BE-AMGEN-BELSP2013080217

PATIENT
  Age: 90 Year
  Sex: Male
  Weight: 67 kg

DRUGS (12)
  1. XGEVA [Suspect]
     Indication: PROPHYLAXIS
     Dosage: 120 1 INJECTION, Q4WK
     Route: 058
     Dates: start: 20130823
  2. CALCIUM SANDOZ                     /00060701/ [Concomitant]
     Indication: SUPPLEMENTATION THERAPY
     Dosage: 1 G 1 THEN 500 MG 2 TIME A DAY
     Route: 048
     Dates: start: 20130822, end: 20130826
  3. D-CURE [Concomitant]
     Indication: SUPPLEMENTATION THERAPY
     Dosage: 25000 IU, QD
     Route: 048
     Dates: start: 20130822, end: 20130823
  4. DAFALGAN [Concomitant]
     Indication: ANALGESIC THERAPY
     Dosage: 1 G, AS NECESSARY
     Route: 048
  5. HALDOL                             /00027401/ [Concomitant]
     Indication: AGITATION
     Dosage: 2 MG/L, 3 DROPS IN MORNING, 3 AT NOON AND 7 IN EVENING
     Route: 048
  6. MOVICOL                            /01625101/ [Concomitant]
     Indication: CONSTIPATION
     Dosage: 1 SACHET IN MORNING
     Route: 048
  7. PANTOMED                           /00178901/ [Concomitant]
     Indication: PROPHYLAXIS
     Dosage: 20, 1 IN MORNING
     Route: 048
     Dates: start: 2013
  8. PERTIROID [Concomitant]
     Indication: RADIOISOTOPE SCAN
     Dosage: 200, 2 TABLET 1
     Route: 048
  9. SIPRALEXA [Concomitant]
     Dosage: 10, 1 TABLET IN MORNING
     Route: 048
  10. TRAZODONE [Concomitant]
     Indication: SLEEP DISORDER
     Dosage: 25 AND 50 1 TABLET IN EVENING
     Route: 048
  11. XANAX [Concomitant]
     Indication: SLEEP DISORDER
     Dosage: 0.5, 1/2 TABLET IN EVENING
     Route: 048
  12. IDEOLAXYL [Concomitant]
     Indication: CONSTIPATION
     Dosage: 1 TABLET IN MORNING
     Route: 048

REACTIONS (7)
  - Death [Fatal]
  - Renal failure chronic [Recovered/Resolved]
  - Blood urea increased [Recovered/Resolved]
  - Localised infection [Recovered/Resolved]
  - Sepsis [Recovered/Resolved]
  - Blood creatinine increased [Recovered/Resolved]
  - Anaemia [Recovered/Resolved]
